FAERS Safety Report 4730201-4 (Version None)
Quarter: 2005Q3

REPORT INFORMATION
  Report Type: 
  Country: None (occurrence: None)
  Receive Date: 20050801
  Receipt Date: 20050713
  Transmission Date: 20060218
  Serious: Yes (Hospitalization)
  Sender: FDA-Public Use
  Company Number: SE-GLAXOSMITHKLINE-B0388978A

PATIENT
  Age: 50 Year
  Sex: Female

DRUGS (7)
  1. ARIXTRA [Suspect]
     Indication: THROMBOSIS PROPHYLAXIS
     Dosage: .5ML PER DAY
     Route: 042
     Dates: start: 20031107, end: 20031116
  2. CITALOPRAM [Suspect]
     Indication: DEPRESSION
     Dosage: 40MG PER DAY
     Route: 048
     Dates: start: 20030101, end: 20031116
  3. BUSPIRONE HCL [Concomitant]
  4. SERETIDE [Concomitant]
     Route: 055
  5. TERBUTALINE SULFATE [Concomitant]
     Route: 055
  6. DIAZEPAM [Concomitant]
  7. ACETYLCYSTEINE [Concomitant]

REACTIONS (4)
  - CONFUSIONAL STATE [None]
  - ESCHERICHIA URINARY TRACT INFECTION [None]
  - HEPATIC FAILURE [None]
  - LIVER DISORDER [None]
